FAERS Safety Report 24250891 (Version 1)
Quarter: 2024Q3

REPORT INFORMATION
  Report Type: Spontaneous
  Country: US (occurrence: None)
  Receive Date: 20240825
  Receipt Date: 20240825
  Transmission Date: 20241017
  Serious: Yes (Other)
  Sender: Public
  Company Number: None

PATIENT
  Age: 79 Year
  Sex: Male
  Weight: 78.3 kg

DRUGS (12)
  1. ISOSORBIDE MONONITRATE [Suspect]
     Active Substance: ISOSORBIDE MONONITRATE
     Indication: Atrioventricular block
     Dosage: 1 TABLET DAILY ORAL
     Route: 048
     Dates: start: 20240824, end: 20240825
  2. BUDESONIDE [Concomitant]
     Active Substance: BUDESONIDE
  3. LOSARTAN [Concomitant]
     Active Substance: LOSARTAN\LOSARTAN POTASSIUM
  4. ALFUZOSIN [Concomitant]
     Active Substance: ALFUZOSIN
  5. OXYBUTYNIN [Concomitant]
     Active Substance: OXYBUTYNIN\OXYBUTYNIN CHLORIDE
  6. ASPIRIN [Concomitant]
     Active Substance: ASPIRIN
  7. RIZATRIPTAN [Concomitant]
     Active Substance: RIZATRIPTAN
  8. MAGNESIUM [Concomitant]
     Active Substance: MAGNESIUM
  9. OMEGA 3 [Concomitant]
     Active Substance: CAPSAICIN
  10. HERBALS\TURMERIC [Concomitant]
     Active Substance: HERBALS\TURMERIC
  11. NAC [Concomitant]
  12. otuvite [Concomitant]

REACTIONS (4)
  - Neck pain [None]
  - Headache [None]
  - Nausea [None]
  - Dizziness [None]

NARRATIVE: CASE EVENT DATE: 20240824
